FAERS Safety Report 21938156 (Version 1)
Quarter: 2023Q1

REPORT INFORMATION
  Report Type: Report from Study
  Country: US (occurrence: US)
  Receive Date: 20230201
  Receipt Date: 20230201
  Transmission Date: 20230417
  Serious: No
  Sender: FDA-Public Use
  Company Number: US-INCYTE CORPORATION-2021IN010146

PATIENT

DRUGS (1)
  1. PEMIGATINIB [Suspect]
     Active Substance: PEMIGATINIB
     Indication: Cholangiocarcinoma
     Dosage: 13.5 MILLIGRAM, QD
     Route: 048
     Dates: start: 20211014

REACTIONS (18)
  - Renal function test abnormal [Unknown]
  - Decreased activity [Unknown]
  - Fluid imbalance [Unknown]
  - Product availability issue [Unknown]
  - Taste disorder [Unknown]
  - Oropharyngeal pain [Unknown]
  - Erythema [Unknown]
  - Vomiting [Unknown]
  - Weight decreased [Unknown]
  - Pain in extremity [Unknown]
  - Platelet count decreased [Unknown]
  - Decreased appetite [Unknown]
  - Arthralgia [Unknown]
  - Nausea [Unknown]
  - Stomatitis [Unknown]
  - Diarrhoea [Unknown]
  - Constipation [Unknown]
  - Blood phosphorus decreased [Unknown]

NARRATIVE: CASE EVENT DATE: 20211001
